FAERS Safety Report 6229267-4 (Version None)
Quarter: 2009Q2

REPORT INFORMATION
  Report Type: 
  Country: None (occurrence: None)
  Receive Date: 20090615
  Receipt Date: 20090513
  Transmission Date: 20091009
  Serious: No
  Sender: FDA-Public Use
  Company Number: US-BAYER-200920950NA

PATIENT
  Age: 53 Year
  Sex: Male

DRUGS (7)
  1. AVELOX [Suspect]
     Indication: UPPER RESPIRATORY TRACT INFECTION
     Dosage: TOTAL DAILY DOSE: 400 MG  UNIT DOSE: 400 MG
  2. TRUSOPT [Concomitant]
  3. TIMOLOL MALEATE [Concomitant]
  4. ALPHAGAN [Concomitant]
  5. ASPIRIN [Concomitant]
  6. MULTI-VITAMIN [Concomitant]
  7. ATIVAN [Concomitant]
     Dosage: TOTAL DAILY DOSE: 1 MG  UNIT DOSE: 0.5 MG

REACTIONS (1)
  - TINNITUS [None]
